FAERS Safety Report 23257504 (Version 1)
Quarter: 2023Q4

REPORT INFORMATION
  Report Type: Spontaneous
  Country: SE (occurrence: SE)
  Receive Date: 20231204
  Receipt Date: 20231204
  Transmission Date: 20240109
  Serious: Yes (Other)
  Sender: FDA-Public Use
  Company Number: None

PATIENT
  Age: 78 Year
  Sex: Male

DRUGS (4)
  1. LEVETIRACETAM [Suspect]
     Active Substance: LEVETIRACETAM
     Indication: Epilepsy
     Dates: start: 20191230
  2. METOPROLOL [Concomitant]
     Active Substance: METOPROLOL
     Indication: Aortic dissection
     Dates: start: 201504
  3. ENALAPRIL [Concomitant]
     Active Substance: ENALAPRIL
     Indication: Aortic dissection
     Dates: start: 201504, end: 20230802
  4. BICALUTAMIDE [Concomitant]
     Active Substance: BICALUTAMIDE
     Dates: start: 2015

REACTIONS (3)
  - Myasthenia gravis [Recovering/Resolving]
  - Eyelid ptosis [Recovered/Resolved]
  - Diplopia [Recovered/Resolved]

NARRATIVE: CASE EVENT DATE: 20220101
